FAERS Safety Report 21011135 (Version 8)
Quarter: 2023Q1

REPORT INFORMATION
  Report Type: Spontaneous
  Country: US (occurrence: US)
  Receive Date: 20220627
  Receipt Date: 20230203
  Transmission Date: 20230418
  Serious: Yes (Hospitalization, Other)
  Sender: FDA-Public Use
  Company Number: US-BRISTOL-MYERS SQUIBB COMPANY-2022-062727

PATIENT
  Age: 74 Year
  Sex: Female

DRUGS (6)
  1. REVLIMID [Suspect]
     Active Substance: LENALIDOMIDE
     Indication: Plasma cell myeloma
     Route: 048
     Dates: start: 20220218
  2. REVLIMID [Suspect]
     Active Substance: LENALIDOMIDE
     Indication: Plasmacytoma
     Route: 048
     Dates: start: 20220221
  3. REVLIMID [Suspect]
     Active Substance: LENALIDOMIDE
     Route: 048
  4. REVLIMID [Suspect]
     Active Substance: LENALIDOMIDE
     Route: 048
     Dates: start: 20220103, end: 20221005
  5. DEXAMETHASONE [Suspect]
     Active Substance: DEXAMETHASONE
     Indication: Product used for unknown indication
     Dates: start: 20220103, end: 20221005
  6. DARATUMUMAB [Suspect]
     Active Substance: DARATUMUMAB
     Indication: Product used for unknown indication
     Dates: start: 20220103, end: 20221010

REACTIONS (11)
  - Illness [Unknown]
  - Fatigue [Unknown]
  - Asthenia [Not Recovered/Not Resolved]
  - Diarrhoea [Recovered/Resolved]
  - Viral infection [Not Recovered/Not Resolved]
  - Dehydration [Not Recovered/Not Resolved]
  - Salmonella sepsis [Recovered/Resolved]
  - Pulmonary embolism [Recovered/Resolved]
  - Splenic abscess [Recovered/Resolved]
  - Renal impairment [Recovered/Resolved]
  - Middle ear effusion [Not Recovered/Not Resolved]

NARRATIVE: CASE EVENT DATE: 20220101
